FAERS Safety Report 21699343 (Version 1)
Quarter: 2022Q4

REPORT INFORMATION
  Report Type: Spontaneous
  Country: US (occurrence: US)
  Receive Date: 20221208
  Receipt Date: 20221208
  Transmission Date: 20230113
  Serious: Yes (Death, Other)
  Sender: FDA-Public Use
  Company Number: US-BRISTOL-MYERS SQUIBB COMPANY-2022-150074

PATIENT
  Age: 69 Year
  Sex: Male
  Weight: 86.18 kg

DRUGS (1)
  1. POMALYST [Suspect]
     Active Substance: POMALIDOMIDE
     Indication: Plasma cell myeloma
     Dosage: DAILY X 21 DAYS ON AND 7 DAYS OFF
     Route: 048
     Dates: start: 20190122

REACTIONS (1)
  - Death [Fatal]
